FAERS Safety Report 5866732-3 (Version None)
Quarter: 2008Q3

REPORT INFORMATION
  Report Type: 
  Country: None (occurrence: None)
  Receive Date: 20080902
  Receipt Date: 20080828
  Transmission Date: 20090109
  Serious: Yes (Hospitalization, Other)
  Sender: FDA-Public Use
  Company Number: US-BAYER-200823657NA

PATIENT
  Age: 32 Year
  Sex: Female
  Weight: 92 kg

DRUGS (4)
  1. MIRENA [Suspect]
     Indication: CONTRACEPTION
     Route: 015
     Dates: start: 20060601
  2. BETA BLOCKING AGENTS [Concomitant]
     Indication: PALPITATIONS
     Dates: start: 20070101
  3. ALBUTEROL [Concomitant]
     Indication: DRUG USE FOR UNKNOWN INDICATION
  4. AGGRENOX [Concomitant]
     Indication: ENZYME ABNORMALITY

REACTIONS (16)
  - ABDOMINAL DISTENSION [None]
  - ADNEXA UTERI PAIN [None]
  - AMENORRHOEA [None]
  - BLOOD PRESSURE DIASTOLIC INCREASED [None]
  - CARDIAC DISORDER [None]
  - CHEST PAIN [None]
  - ENZYME ABNORMALITY [None]
  - OEDEMA PERIPHERAL [None]
  - OVARIAN CYST [None]
  - PALPITATIONS [None]
  - PELVIC PAIN [None]
  - PLATELET COUNT INCREASED [None]
  - PROCEDURAL PAIN [None]
  - TRANSIENT ISCHAEMIC ATTACK [None]
  - VAGINAL DISCHARGE [None]
  - WEIGHT INCREASED [None]
